FAERS Safety Report 25078846 (Version 2)
Quarter: 2025Q4

REPORT INFORMATION
  Report Type: Spontaneous
  Country: US (occurrence: US)
  Receive Date: 20250314
  Receipt Date: 20251125
  Transmission Date: 20260118
  Serious: Yes (Other)
  Sender: COOPERSURGICAL
  Company Number: US-COOPERSURGICAL, INC.-2025CPS001821

PATIENT
  Age: 25 Year
  Sex: Female
  Weight: 69.841 kg

DRUGS (1)
  1. PARAGARD T 380A [Suspect]
     Active Substance: COPPER
     Indication: Contraception
     Dosage: UNK
     Route: 015
     Dates: start: 20151211

REACTIONS (30)
  - Device allergy [Not Recovered/Not Resolved]
  - Uterine leiomyoma [Unknown]
  - Reproductive complication associated with device [Not Recovered/Not Resolved]
  - Loss of consciousness [Not Recovered/Not Resolved]
  - Seizure [Not Recovered/Not Resolved]
  - Blindness [Unknown]
  - Device breakage [Unknown]
  - Foreign body in urogenital tract [Unknown]
  - Complication of device removal [Unknown]
  - Embedded device [Unknown]
  - Abnormal uterine bleeding [Not Recovered/Not Resolved]
  - Procedural haemorrhage [Recovered/Resolved]
  - Pituitary tumour benign [Not Recovered/Not Resolved]
  - Headache [Unknown]
  - Weight decreased [Unknown]
  - Neurological symptom [Unknown]
  - Galactorrhoea [Unknown]
  - Hormone level abnormal [Unknown]
  - Ovulation disorder [Not Recovered/Not Resolved]
  - Post-traumatic stress disorder [Unknown]
  - Depression [Unknown]
  - Anxiety [Unknown]
  - Fatigue [Unknown]
  - Dizziness [Not Recovered/Not Resolved]
  - Anaemia [Not Recovered/Not Resolved]
  - Menstruation irregular [Not Recovered/Not Resolved]
  - Vaginal infection [Not Recovered/Not Resolved]
  - Dyspareunia [Not Recovered/Not Resolved]
  - Pain [Unknown]
  - Abdominal pain [Not Recovered/Not Resolved]

NARRATIVE: CASE EVENT DATE: 20151212
